FAERS Safety Report 6682119-8 (Version None)
Quarter: 2010Q2

REPORT INFORMATION
  Report Type: 
  Country: None (occurrence: None)
  Receive Date: 20100415
  Receipt Date: 20100406
  Transmission Date: 20101027
  Serious: No
  Sender: FDA-Public Use
  Company Number: US-BIOGENIDEC-2010BI011626

PATIENT
  Age: 42 Year
  Sex: Female

DRUGS (2)
  1. TYSABRI [Suspect]
     Indication: MULTIPLE SCLEROSIS
     Route: 042
     Dates: start: 20070309, end: 20081017
  2. TYSABRI [Suspect]
     Route: 042
     Dates: start: 20081212, end: 20100305

REACTIONS (2)
  - HEADACHE [None]
  - VISUAL IMPAIRMENT [None]
